FAERS Safety Report 8403081-3 (Version None)
Quarter: 2012Q2

REPORT INFORMATION
  Report Type: 
  Country: None (occurrence: None)
  Receive Date: 20120601
  Receipt Date: 20120529
  Transmission Date: 20120825
  Serious: Yes (Hospitalization)
  Sender: FDA-Public Use
  Company Number: US-GLAXOSMITHKLINE-A0979303A

PATIENT
  Age: 45 Year
  Sex: Female

DRUGS (2)
  1. ALLI [Suspect]
     Indication: WEIGHT LOSS DIET
     Route: 048
  2. PENICILLIN [Suspect]
     Indication: PYREXIA

REACTIONS (7)
  - CHROMATURIA [None]
  - HEPATIC ENZYME INCREASED [None]
  - MICTURITION FREQUENCY DECREASED [None]
  - PYREXIA [None]
  - WEIGHT INCREASED [None]
  - MALAISE [None]
  - DEPENDENCE [None]
